FAERS Safety Report 5366341-9 (Version None)
Quarter: 2007Q2

REPORT INFORMATION
  Report Type: 
  Country: None (occurrence: None)
  Receive Date: 20070620
  Receipt Date: 20070620
  Transmission Date: 20071010
  Serious: Yes (Hospitalization)
  Sender: FDA-Public Use
  Company Number: None

PATIENT
  Age: 54 Year
  Sex: Female
  Weight: 97.5234 kg

DRUGS (14)
  1. ALPHAGAN [Suspect]
     Indication: OPEN ANGLE GLAUCOMA
     Dosage: 1 GTT BID OPHTHALMIC
     Route: 047
     Dates: start: 20070516, end: 20070606
  2. IBUPROFEN [Suspect]
     Indication: OPEN ANGLE GLAUCOMA
     Dosage: 400 MG TID PO
     Route: 048
     Dates: start: 20070530, end: 20070606
  3. TRAMADOL HCL [Concomitant]
  4. MULTI-VITAMIN [Concomitant]
  5. VITAMIN A+D [Concomitant]
  6. LOVASTATIN [Concomitant]
  7. ESTER C [Concomitant]
  8. SOY SUPPLEMENT [Concomitant]
  9. LOTREL [Concomitant]
  10. CALCIUM CHLORIDE [Concomitant]
  11. FOLIC ACID [Concomitant]
  12. CARVEDILOL [Concomitant]
  13. MAGNESIUM SULFATE [Concomitant]
  14. GLUCOSAMINE/CHONDROITIN [Concomitant]

REACTIONS (1)
  - INTESTINAL OBSTRUCTION [None]
